FAERS Safety Report 19314229 (Version 1)
Quarter: 2021Q2

REPORT INFORMATION
  Report Type: Spontaneous
  Country: US (occurrence: US)
  Receive Date: 20210527
  Receipt Date: 20210527
  Transmission Date: 20210717
  Serious: Yes (Hospitalization)
  Sender: FDA-Public Use
  Company Number: None

PATIENT
  Sex: Female

DRUGS (11)
  1. REPATHA [Suspect]
     Active Substance: EVOLOCUMAB
     Indication: DERMATITIS
     Dosage: ?          OTHER FREQUENCY:MONTHLY;?
     Route: 058
     Dates: start: 20200904
  2. CLONIDINE 0.1MG [Concomitant]
     Active Substance: CLONIDINE
  3. SERTRALINE [Concomitant]
     Active Substance: SERTRALINE HYDROCHLORIDE
  4. KETOCONAZOLE. [Concomitant]
     Active Substance: KETOCONAZOLE
  5. GABAPENTIN 100MG [Concomitant]
     Active Substance: GABAPENTIN
  6. PANTOPRAZOLE 40MG [Concomitant]
     Active Substance: PANTOPRAZOLE SODIUM
  7. HYOSCYAMINE. [Concomitant]
     Active Substance: HYOSCYAMINE
  8. VALSARTAN 160MG [Concomitant]
     Active Substance: VALSARTAN
  9. METFORMIN [Concomitant]
     Active Substance: METFORMIN HYDROCHLORIDE
  10. COREG 12.5MG [Concomitant]
  11. CYANOCOBALAM 100MCG [Concomitant]
     Active Substance: CYANOCOBALAMIN

REACTIONS (1)
  - Spinal operation [None]
